FAERS Safety Report 19651037 (Version 1)
Quarter: 2021Q3

REPORT INFORMATION
  Report Type: Spontaneous
  Country: US (occurrence: US)
  Receive Date: 20210803
  Receipt Date: 20210803
  Transmission Date: 20211014
  Serious: Yes (Hospitalization, Other)
  Sender: FDA-Public Use
  Company Number: US-SUN PHARMACEUTICAL INDUSTRIES LTD-2021R1-306372

PATIENT
  Age: 67 Year
  Sex: Female

DRUGS (2)
  1. DEXAMETHASONE. [Suspect]
     Active Substance: DEXAMETHASONE
     Indication: GLIOBLASTOMA MULTIFORME
     Dosage: 2 MILLIGRAM, BID
     Route: 065
  2. TEMOZOLOMIDE. [Suspect]
     Active Substance: TEMOZOLOMIDE
     Indication: GLIOBLASTOMA MULTIFORME
     Dosage: 120 MILLIGRAM, DAILY, FOR 5 DAYS EVERY 4 WEEKS
     Route: 065

REACTIONS (4)
  - Lymphopenia [Unknown]
  - Normochromic anaemia [Unknown]
  - Salmonellosis [Unknown]
  - Leukopenia [Unknown]
